FAERS Safety Report 6890181-2 (Version None)
Quarter: 2010Q3

REPORT INFORMATION
  Report Type: 
  Country: None (occurrence: None)
  Receive Date: 20100730
  Receipt Date: 20080904
  Transmission Date: 20110219
  Serious: No
  Sender: FDA-Public Use
  Company Number: US-PFIZER INC-2008070211

PATIENT
  Sex: Female

DRUGS (1)
  1. DOXYCYCLINE [Suspect]
     Indication: STAPHYLOCOCCAL ABSCESS

REACTIONS (2)
  - ASTHENIA [None]
  - DRUG INEFFECTIVE [None]
